FAERS Safety Report 4959081-9 (Version None)
Quarter: 2006Q1

REPORT INFORMATION
  Report Type: 
  Country: None (occurrence: None)
  Receive Date: 20060331
  Receipt Date: 20060322
  Transmission Date: 20060701
  Serious: Yes (Other)
  Sender: FDA-Public Use
  Company Number: US-JNJFOC-20060300038

PATIENT
  Sex: Female

DRUGS (1)
  1. REMICADE [Suspect]
     Route: 042

REACTIONS (5)
  - APHASIA [None]
  - DIZZINESS [None]
  - HEPATITIS B CORE ANTIGEN [None]
  - LIVER FUNCTION TEST ABNORMAL [None]
  - SMOOTH MUSCLE ANTIBODY POSITIVE [None]
